FAERS Safety Report 5147271-4 (Version None)
Quarter: 2006Q4

REPORT INFORMATION
  Report Type: 
  Country: None (occurrence: None)
  Receive Date: 20061103
  Receipt Date: 20061020
  Transmission Date: 20070319
  Serious: Yes (Death, Hospitalization)
  Sender: FDA-Public Use
  Company Number: 2006025769

PATIENT
  Age: 51 Year
  Sex: Male
  Weight: 136.0791 kg

DRUGS (2)
  1. BEXTRA [Suspect]
     Indication: ANALGESIC EFFECT
     Dosage: 10 MG (10 MG, 1 IN 1 D)
     Dates: start: 20041102, end: 20050311
  2. BEXTRA [Suspect]
     Indication: ARTHRALGIA
     Dosage: 10 MG (10 MG, 1 IN 1 D)
     Dates: start: 20041102, end: 20050311

REACTIONS (3)
  - CAROTID ARTERY OCCLUSION [None]
  - CEREBRAL INFARCTION [None]
  - CEREBROVASCULAR ACCIDENT [None]
